FAERS Safety Report 23254416 (Version 1)
Quarter: 2023Q4

REPORT INFORMATION
  Report Type: Spontaneous
  Country: US (occurrence: US)
  Receive Date: 20231202
  Receipt Date: 20231202
  Transmission Date: 20240110
  Serious: Yes (Hospitalization, Other)
  Sender: FDA-Public Use
  Company Number: US-GLENMARK PHARMACEUTICALS-2023GMK086895

PATIENT

DRUGS (7)
  1. METRONIDAZOLE [Suspect]
     Active Substance: METRONIDAZOLE
     Indication: Liver abscess
     Dosage: 500 MILLIGRAM, TID
     Route: 048
  2. METRONIDAZOLE [Suspect]
     Active Substance: METRONIDAZOLE
     Dosage: 750 MILLIGRAM, TID
     Route: 048
  3. MEROPENEM [Concomitant]
     Active Substance: MEROPENEM
     Indication: Liver abscess
     Dosage: 1 GRAM, TID (EVERY 8 HOURS)
     Route: 065
  4. MEROPENEM [Concomitant]
     Active Substance: MEROPENEM
     Dosage: 1 GRAM, TID (EVERY 8 HOURS)
     Route: 065
  5. ERTAPENEM [Concomitant]
     Active Substance: ERTAPENEM
     Indication: Liver abscess
     Dosage: 1 GRAM, QD
     Route: 065
  6. ERTAPENEM [Concomitant]
     Active Substance: ERTAPENEM
     Dosage: 1 GRAM, QD
     Route: 065
  7. PAROMOMYCIN [Concomitant]
     Active Substance: PAROMOMYCIN
     Indication: Liver abscess
     Dosage: 1000 MILLIGRAM, TID
     Route: 048

REACTIONS (3)
  - Hepatic amoebiasis [Unknown]
  - Underdose [Unknown]
  - Disease recurrence [Unknown]
